FAERS Safety Report 7417244-7 (Version None)
Quarter: 2011Q2

REPORT INFORMATION
  Report Type: 
  Country: None (occurrence: None)
  Receive Date: 20110408
  Receipt Date: 20110322
  Transmission Date: 20111010
  Serious: Yes (Other)
  Sender: FDA-Public Use
  Company Number: OMPQ-NO-1103S-0268

PATIENT
  Age: 21 Year
  Sex: Male

DRUGS (1)
  1. OMNIPAQUE 70 [Suspect]
     Indication: PRODUCT USED FOR UNKNOWN INDICATION
     Dosage: 80 ML, SINGLE DOSE, INTRAVENOUS
     Route: 042
     Dates: start: 20110303, end: 20110303

REACTIONS (1)
  - INJECTION SITE EXTRAVASATION [None]
